FAERS Safety Report 17211203 (Version 1)
Quarter: 2019Q4

REPORT INFORMATION
  Report Type: Report from Study
  Country: DE (occurrence: DE)
  Receive Date: 20191228
  Receipt Date: 20191228
  Transmission Date: 20200122
  Serious: Yes (Hospitalization, Other)
  Sender: FDA-Public Use
  Company Number: DE-BRISTOL-MYERS SQUIBB COMPANY-BMS-2019-041891

PATIENT
  Age: 56 Year
  Sex: Male

DRUGS (5)
  1. NIVOLUMAB [Suspect]
     Active Substance: NIVOLUMAB
     Indication: NON-SMALL CELL LUNG CANCER
     Dosage: 240 MILLIGRAM, Q2WK
     Route: 042
     Dates: start: 20190225
  2. CALCIVIT [ASCORBIC ACID;CALCIUM CARBONATE] [Concomitant]
     Indication: PRODUCT USED FOR UNKNOWN INDICATION
     Dosage: UNK
     Route: 065
  3. PANTOPRAZOLE [Concomitant]
     Active Substance: PANTOPRAZOLE
     Indication: PROPHYLAXIS
     Dosage: 40 MILLIGRAM
     Route: 065
  4. XARELTO [Concomitant]
     Active Substance: RIVAROXABAN
     Indication: PROPHYLAXIS
     Dosage: 20 MILLIGRAM
     Route: 065
  5. MST [MAGNESIUM SALICYLATE] [Concomitant]
     Indication: NON-SMALL CELL LUNG CANCER
     Dosage: 10 MILLIGRAM
     Route: 065

REACTIONS (4)
  - White blood cell count increased [Unknown]
  - Mucosal inflammation [Not Recovered/Not Resolved]
  - Metastases to meninges [Not Recovered/Not Resolved]
  - Malignant neoplasm progression [Not Recovered/Not Resolved]

NARRATIVE: CASE EVENT DATE: 20190227
